FAERS Safety Report 6410164-6 (Version None)
Quarter: 2009Q4

REPORT INFORMATION
  Report Type: 
  Country: None (occurrence: None)
  Receive Date: 20091022
  Receipt Date: 20091020
  Transmission Date: 20100525
  Serious: Yes (Other)
  Sender: FDA-Public Use
  Company Number: US-ROXANE LABORATORIES, INC.-2009-RO-01074RO

PATIENT
  Age: 41 Year
  Sex: Female

DRUGS (4)
  1. CYCLOPHOSPHAMIDE [Suspect]
     Indication: BREAST CANCER STAGE II
  2. ADRIAMYCIN PFS [Suspect]
     Indication: BREAST CANCER STAGE II
  3. PACLITAXEL [Suspect]
     Indication: BREAST CANCER STAGE II
  4. DOCETAXEL [Concomitant]
     Indication: BREAST CANCER STAGE II

REACTIONS (5)
  - BREAST CANCER [None]
  - ERYTHEMA [None]
  - SKIN EXFOLIATION [None]
  - SKIN TOXICITY [None]
  - VITILIGO [None]
